FAERS Safety Report 19274604 (Version 1)
Quarter: 2021Q2

REPORT INFORMATION
  Report Type: Spontaneous
  Country: GB (occurrence: GB)
  Receive Date: 20210519
  Receipt Date: 20210519
  Transmission Date: 20210717
  Serious: Yes (Other)
  Sender: FDA-Public Use
  Company Number: GB-ACCORD-225365

PATIENT
  Age: 76 Year
  Sex: Female
  Weight: 64 kg

DRUGS (12)
  1. ONDANSETRON [Concomitant]
     Active Substance: ONDANSETRON
     Dosage: 1 DAILY WHEN REQUIRED
     Dates: start: 20210318, end: 20210407
  2. AMITRIPTYLINE [Concomitant]
     Active Substance: AMITRIPTYLINE
     Dosage: 1 AT NIGHT
     Dates: start: 20201123
  3. NOVORAPID [Concomitant]
     Active Substance: INSULIN ASPART
     Dosage: AS DIRECTED
     Dates: start: 20201123
  4. RAMIPRIL. [Suspect]
     Active Substance: RAMIPRIL
     Indication: PRODUCT USED FOR UNKNOWN INDICATION
     Dosage: TAKE ONE DAILY
     Dates: start: 20201123
  5. LEVEMIR [Concomitant]
     Active Substance: INSULIN DETEMIR
     Dosage: USE AS DIRECTED
     Dates: start: 20200811
  6. OMEPRAZOLE. [Concomitant]
     Active Substance: OMEPRAZOLE
     Dosage: TAKE ONE? TWO ONCE DAILY
     Dates: start: 20201123
  7. ATORVASTATIN [Concomitant]
     Active Substance: ATORVASTATIN
     Dosage: TAKE ONE DAILY
     Dates: start: 20201123
  8. HYOSCINE [Concomitant]
     Active Substance: SCOPOLAMINE
     Dosage: TAKE TWO 4 TIMES/DAY
     Dates: start: 20210205, end: 20210212
  9. LEVOTHYROXINE. [Concomitant]
     Active Substance: LEVOTHYROXINE
     Dosage: TAKE ONE EACH MORNING
     Dates: start: 20201123
  10. MEBEVERINE [Concomitant]
     Active Substance: MEBEVERINE
     Dosage: TAKE ONE 3 TIMES/DAY
     Dates: start: 20210315, end: 20210322
  11. MENTHA X PIPERITA [Concomitant]
     Active Substance: MENTHA PIPERITA
     Dosage: ONE TO BE TAKEN THREE TIMES A DAILY
     Dates: start: 20210208, end: 20210209
  12. ASPIRIN. [Concomitant]
     Active Substance: ASPIRIN
     Dosage: 1 TABLET  WITH OR JUST AFTER FOOD AS DIRECTED (...
     Dates: start: 20201123

REACTIONS (3)
  - Fatigue [Unknown]
  - Skin disorder [Recovered/Resolved]
  - Nasal congestion [Recovered/Resolved]

NARRATIVE: CASE EVENT DATE: 20210504
